FAERS Safety Report 10421854 (Version 1)
Quarter: 2014Q3

REPORT INFORMATION
  Report Type: Spontaneous
  Country: DE (occurrence: DE)
  Receive Date: 20140901
  Receipt Date: 20140901
  Transmission Date: 20150326
  Serious: Yes (Other)
  Sender: FDA-Public Use
  Company Number: DE-JNJFOC-20140816936

PATIENT
  Age: 65 Year
  Sex: Male

DRUGS (1)
  1. ZYTIGA [Suspect]
     Active Substance: ABIRATERONE ACETATE
     Indication: PRODUCT USED FOR UNKNOWN INDICATION
     Dosage: THERAPY START DATE: SINCE 1 MONTH
     Route: 048
     Dates: start: 2014

REACTIONS (5)
  - Diplopia [Unknown]
  - Gait disturbance [Unknown]
  - Aspartate aminotransferase increased [Unknown]
  - Dysphonia [Unknown]
  - Sensory disturbance [Unknown]
